FAERS Safety Report 7086054-5 (Version None)
Quarter: 2010Q4

REPORT INFORMATION
  Report Type: 
  Country: None (occurrence: None)
  Receive Date: 20101105
  Receipt Date: 20101102
  Transmission Date: 20110411
  Serious: Yes (Hospitalization)
  Sender: FDA-Public Use
  Company Number: A0890298A

PATIENT
  Age: 70 Year
  Sex: Female

DRUGS (9)
  1. ZANTAC [Suspect]
     Dosage: 150MG TWICE PER DAY
     Route: 048
  2. ALLOPURINOL [Concomitant]
  3. SEREVENT [Concomitant]
  4. FLONASE [Concomitant]
  5. FLOVENT [Concomitant]
  6. THEOPHYLLINE [Concomitant]
  7. ASPIRIN [Concomitant]
  8. ALLERGY MEDICINE [Concomitant]
  9. PREDNISONE [Concomitant]

REACTIONS (2)
  - CHEST PAIN [None]
  - GASTROOESOPHAGEAL REFLUX DISEASE [None]
